FAERS Safety Report 9374874 (Version 1)
Quarter: 2013Q2

REPORT INFORMATION
  Report Type: Spontaneous
  Country: US (occurrence: US)
  Receive Date: 20130628
  Receipt Date: 20130628
  Transmission Date: 20140414
  Serious: No
  Sender: FDA-Public Use
  Company Number: US-009507513-1306USA000549

PATIENT
  Age: 64 Year
  Sex: Female
  Weight: 57.6 kg

DRUGS (1)
  1. MIRALAX [Suspect]
     Indication: CONSTIPATION
     Dosage: 17 G, QD
     Route: 048
     Dates: start: 2008, end: 2013

REACTIONS (3)
  - Vomiting [Recovered/Resolved]
  - Abdominal discomfort [Recovered/Resolved]
  - Product odour abnormal [Unknown]
